FAERS Safety Report 6084265-9 (Version None)
Quarter: 2009Q1

REPORT INFORMATION
  Report Type: 
  Country: None (occurrence: None)
  Receive Date: 20090219
  Receipt Date: 20090211
  Transmission Date: 20090719
  Serious: Yes (Other)
  Sender: FDA-Public Use
  Company Number: PHEH2006US06354

PATIENT
  Sex: Male

DRUGS (27)
  1. AREDIA [Suspect]
     Indication: MULTIPLE MYELOMA
     Dosage: 90 MG,UNK
     Route: 042
     Dates: start: 19970601
  2. AREDIA [Suspect]
     Dosage: 90 MG, QMO
     Dates: start: 20021201, end: 20030801
  3. ZOMETA [Suspect]
     Indication: MULTIPLE MYELOMA
     Dosage: 4 MG, QMO
     Dates: start: 20031001, end: 20060411
  4. BETAPACE [Concomitant]
  5. OXYCODONE HCL [Concomitant]
  6. KLONOPIN [Concomitant]
  7. LEXAPRO [Concomitant]
  8. FUROSEMIDE [Concomitant]
  9. LISINOPRIL [Concomitant]
  10. SPIRONOLACTONE [Concomitant]
  11. LORAZEPAM [Concomitant]
  12. PLAVIX [Concomitant]
  13. PREDNISONE TAB [Concomitant]
     Indication: ARTHRITIS
     Dosage: 5 MG, QD
     Dates: start: 19950901
  14. STEROIDS NOS [Concomitant]
  15. OXYCONTIN [Concomitant]
  16. SERZONE [Concomitant]
     Indication: DEPRESSION
  17. TENORMIN [Concomitant]
  18. ST. JOHN'S WORT [Concomitant]
  19. BETAPACE [Concomitant]
     Indication: ARRHYTHMIA
  20. POTASSIUM CHLORIDE [Concomitant]
  21. LASIX [Concomitant]
  22. MAGNESIUM SULFATE [Concomitant]
  23. ZINC [Concomitant]
  24. MELPHALAN [Concomitant]
  25. DECADRON                                /NET/ [Concomitant]
  26. NITROGLYCERIN ^DAVID BULL^ [Concomitant]
     Indication: ANGINA PECTORIS
  27. FELDENE [Concomitant]

REACTIONS (31)
  - ANGINA PECTORIS [None]
  - ANHEDONIA [None]
  - ANXIETY [None]
  - ARTERIAL OCCLUSIVE DISEASE [None]
  - ARTHRITIS [None]
  - ATRIAL FIBRILLATION [None]
  - BLOOD IMMUNOGLOBULIN G INCREASED [None]
  - BONE DISORDER [None]
  - BONE PAIN [None]
  - BONE SWELLING [None]
  - CARDIOMEGALY [None]
  - CATHETERISATION CARDIAC [None]
  - CORONARY ANGIOPLASTY [None]
  - CORONARY ARTERIAL STENT INSERTION [None]
  - CORONARY ARTERY DISEASE [None]
  - DEPRESSION [None]
  - EDENTULOUS [None]
  - FRACTURED SACRUM [None]
  - GENERAL PHYSICAL HEALTH DETERIORATION [None]
  - INSOMNIA [None]
  - MASS [None]
  - NEURALGIA [None]
  - NEUROPATHY PERIPHERAL [None]
  - OSTEONECROSIS [None]
  - PAIN [None]
  - PAIN IN JAW [None]
  - PSORIASIS [None]
  - SURGERY [None]
  - THORACOTOMY [None]
  - TOBACCO USER [None]
  - TOOTH EXTRACTION [None]
